FAERS Safety Report 8950565 (Version 1)
Quarter: 2012Q4

REPORT INFORMATION
  Report Type: Spontaneous
  Country: FR (occurrence: None)
  Receive Date: 20121128
  Receipt Date: 20121128
  Transmission Date: 20130627
  Serious: Yes (Hospitalization)
  Sender: FDA-Public Use
  Company Number: 219588

PATIENT
  Age: 69 Year
  Sex: Female

DRUGS (6)
  1. INNOHEP (TINZAPARIN SODIUM) [Suspect]
     Dosage: Curative
     Route: 058
     Dates: start: 20120825, end: 20120910
  2. PREVISCAN [Suspect]
     Route: 048
     Dates: start: 20120825, end: 20120919
  3. CORDARONE (AMIODARONE HYDROCHLORIDE) [Concomitant]
  4. ADUNERIC (FEBUXOSTAT) [Concomitant]
  5. CRESTOR (ROSUVASTATIN) [Concomitant]
  6. PARACETAMOL (PARACETAMOL) [Concomitant]

REACTIONS (2)
  - Haemoglobin decreased [None]
  - Abdominal wall haematoma [None]
